FAERS Safety Report 10674616 (Version 1)
Quarter: 2014Q4

REPORT INFORMATION
  Report Type: Spontaneous
  Country: US (occurrence: US)
  Receive Date: 20141224
  Receipt Date: 20141224
  Transmission Date: 20150529
  Serious: Yes (Other)
  Sender: FDA-Public Use
  Company Number: US-ACTAVIS-2014-27340

PATIENT
  Age: 59 Year
  Sex: Male

DRUGS (2)
  1. NABUMETONE (WATSON LABORATORIES) [Suspect]
     Active Substance: NABUMETONE
     Indication: OSTEOARTHRITIS
     Dosage: 1000 MG, DAILY
     Route: 065
  2. HYDROCHLOROTHIAZIDE AND LISINOPRIL [Suspect]
     Active Substance: HYDROCHLOROTHIAZIDE\LISINOPRIL
     Indication: HYPERTENSION
     Dosage: 1 DF, DAILY
     Route: 065

REACTIONS (6)
  - Acute kidney injury [Recovering/Resolving]
  - Renal cell carcinoma [None]
  - Procedural hypotension [None]
  - Fluid overload [None]
  - Metabolic acidosis [None]
  - Anaemia [None]

NARRATIVE: CASE EVENT DATE: 20130222
